FAERS Safety Report 15491892 (Version 1)
Quarter: 2018Q4

REPORT INFORMATION
  Report Type: Spontaneous
  Country: US (occurrence: US)
  Receive Date: 20181011
  Receipt Date: 20181011
  Transmission Date: 20190205
  Serious: No
  Sender: FDA-Public Use
  Company Number: None

PATIENT
  Age: 43 Year
  Sex: Female
  Weight: 70.2 kg

DRUGS (1)
  1. GENERIC FOR CYMBALTA [Suspect]
     Active Substance: DULOXETINE
     Indication: NEURALGIA
     Route: 048
     Dates: start: 20161001, end: 20180817

REACTIONS (9)
  - Tachycardia [None]
  - Cold sweat [None]
  - Dizziness [None]
  - Dyspnoea [None]
  - Hyperhidrosis [None]
  - Agitation [None]
  - Insomnia [None]
  - Anxiety [None]
  - Irritability [None]

NARRATIVE: CASE EVENT DATE: 20180816
